FAERS Safety Report 9633934 (Version 1)
Quarter: 2013Q4

REPORT INFORMATION
  Report Type: Spontaneous
  Country: US (occurrence: None)
  Receive Date: 20131017
  Receipt Date: 20131017
  Transmission Date: 20140711
  Serious: Yes (Hospitalization)
  Sender: FDA-Public Use
  Company Number: DEP_01237_2013

PATIENT
  Age: 53 Year
  Sex: Female

DRUGS (16)
  1. LAZANDA [Suspect]
     Indication: BREAKTHROUGH PAIN
     Dosage: 400 UG QID NASAL
     Dates: start: 20130426
  2. NUVIGIL [Concomitant]
  3. CYCLOBENZAPRINE [Concomitant]
  4. SUMATRIPTAN [Concomitant]
  5. LORAZEPAM [Concomitant]
  6. TRAMADOL [Concomitant]
  7. FENTANYL [Concomitant]
  8. XANAX [Concomitant]
  9. KLOR-CON [Concomitant]
  10. PANTOPRAZOL [Concomitant]
  11. ZETIA [Concomitant]
  12. BUPROPION [Concomitant]
  13. SYNTHROID [Concomitant]
  14. FUROSEMIDE [Concomitant]
  15. ASPIRIN [Concomitant]
  16. BRILINTA [Concomitant]

REACTIONS (2)
  - Drug withdrawal syndrome [None]
  - Feeling abnormal [None]
